FAERS Safety Report 13110416 (Version 1)
Quarter: 2017Q1

REPORT INFORMATION
  Report Type: Spontaneous
  Country: US (occurrence: US)
  Receive Date: 20170112
  Receipt Date: 20170112
  Transmission Date: 20170428
  Serious: Yes (Hospitalization)
  Sender: FDA-Public Use
  Company Number: US-ROCHE-1098666

PATIENT
  Age: 38 Year
  Sex: Male

DRUGS (5)
  1. HEPARIN [Concomitant]
     Active Substance: HEPARIN SODIUM
     Indication: PRODUCT USED FOR UNKNOWN INDICATION
  2. BETA BLOCKERS [Concomitant]
     Active Substance: UNSPECIFIED INGREDIENT
  3. ACTIVASE [Suspect]
     Active Substance: ALTEPLASE
     Indication: ACUTE MYOCARDIAL INFARCTION
     Route: 065
  4. NITROGLYCERIN. [Concomitant]
     Active Substance: NITROGLYCERIN
     Indication: VASOSPASM
  5. BENZODIAZEPINE NOS [Concomitant]
     Active Substance: BENZODIAZEPINE

REACTIONS (1)
  - Mouth haemorrhage [Recovering/Resolving]
